FAERS Safety Report 8933480 (Version 1)
Quarter: 2012Q4

REPORT INFORMATION
  Report Type: 
  Country: US (occurrence: US)
  Receive Date: 20121128
  Receipt Date: 20121128
  Transmission Date: 20130627
  Serious: No
  Sender: FDA-Public Use
  Company Number: US-ABBOTT-12P-163-0999880-00

PATIENT
  Sex: Male
  Weight: 80.81 kg

DRUGS (9)
  1. ANDROGEL [Suspect]
     Indication: BLOOD TESTOSTERONE DECREASED
     Dates: start: 201207
  2. TESTIM [Suspect]
     Indication: PRODUCT USED FOR UNKNOWN INDICATION
     Dates: end: 201207
  3. LAMISIL [Concomitant]
     Indication: ONYCHOMYCOSIS
  4. MICARDIS [Concomitant]
     Indication: HYPERTENSION
  5. SYNTHROID [Concomitant]
     Indication: THYROIDECTOMY
  6. AMBIEN [Concomitant]
     Indication: INSOMNIA
  7. PRAVACHOL [Concomitant]
     Indication: BLOOD CHOLESTEROL INCREASED
  8. LORAZEPAM [Concomitant]
     Indication: ANXIETY DISORDER
     Dosage: as needed
  9. LOSARTAN [Concomitant]
     Indication: HYPERTENSION

REACTIONS (3)
  - Blood testosterone abnormal [Not Recovered/Not Resolved]
  - Fatigue [Not Recovered/Not Resolved]
  - Libido decreased [Not Recovered/Not Resolved]
